FAERS Safety Report 4957661-8 (Version None)
Quarter: 2006Q1

REPORT INFORMATION
  Report Type: 
  Country: None (occurrence: None)
  Receive Date: 20060324
  Receipt Date: 20060308
  Transmission Date: 20060701
  Serious: Yes (Hospitalization)
  Sender: FDA-Public Use
  Company Number: USA0511112626

PATIENT
  Age: 65 Year
  Sex: Female

DRUGS (3)
  1. FORTEO [Suspect]
     Indication: OSTEOPOROSIS
     Dates: start: 20050801
  2. FORTEO PEN, 250MCG/ML(3ML) (FORTEO PEN 250MCG/ML (3ML)) PEN, DISPOSABL [Concomitant]
  3. FORTEO PEN (250MCG/ML) (FORTEO 250MCG/ML (3ML)) PEN, DISPOSABLE [Concomitant]

REACTIONS (9)
  - DEVICE FAILURE [None]
  - INTERVERTEBRAL DISC DISORDER [None]
  - PAIN [None]
  - PAIN IN EXTREMITY [None]
  - PHARMACEUTICAL PRODUCT COMPLAINT [None]
  - SCIATICA [None]
  - SPINAL DISORDER [None]
  - SPINAL OSTEOARTHRITIS [None]
  - TREATMENT NONCOMPLIANCE [None]
